FAERS Safety Report 6990234-4 (Version None)
Quarter: 2010Q3

REPORT INFORMATION
  Report Type: 
  Country: None (occurrence: None)
  Receive Date: 20100916
  Receipt Date: 20100521
  Transmission Date: 20110219
  Serious: Yes (Other)
  Sender: FDA-Public Use
  Company Number: IE-PFIZER INC-2010043302

PATIENT
  Sex: Male
  Weight: 75 kg

DRUGS (11)
  1. LYRICA [Suspect]
     Indication: BACK PAIN
     Dosage: 250 MG, 2X/DAY
     Dates: start: 20080514, end: 20100325
  2. OXYCONTIN [Concomitant]
     Dosage: 20 MG, 2X/DAY
  3. TEMAZEPAM [Concomitant]
     Dosage: 10 MG, 1X/DAY
  4. DIAZEPAM [Concomitant]
     Dosage: 10 MG, 1X/DAY
  5. DILTIAZEM [Concomitant]
     Dosage: 60 MG, 2X/DAY
  6. ATORVASTATIN [Concomitant]
     Dosage: 40 MG, 1X/DAY
  7. DICLOFENAC SODIUM [Concomitant]
     Dosage: 75 MG, 2X/DAY
  8. TRITACE [Concomitant]
     Dosage: 2.5 MG, 1X/DAY
  9. OMEPRAZOLE [Concomitant]
     Dosage: 20 MG, 1X/DAY
  10. NULYTELY [Concomitant]
     Dosage: 1 DF, 1X/DAY
  11. PARACETAMOL [Concomitant]
     Dosage: 2 DF, 3X/DAY

REACTIONS (4)
  - BURNING SENSATION [None]
  - DECREASED APPETITE [None]
  - NAUSEA [None]
  - WITHDRAWAL SYNDROME [None]
